FAERS Safety Report 9801693 (Version 2)
Quarter: 2014Q1

REPORT INFORMATION
  Report Type: Report from Study
  Country: US (occurrence: US)
  Receive Date: 20140107
  Receipt Date: 20140214
  Transmission Date: 20141002
  Serious: Yes (Death, Other)
  Sender: FDA-Public Use
  Company Number: US-TEVA-454233USA

PATIENT
  Sex: Female

DRUGS (3)
  1. CLOZAPINE [Suspect]
     Indication: SCHIZOPHRENIA
     Route: 048
  2. PARNATE [Concomitant]
  3. NALTREXONE [Concomitant]

REACTIONS (1)
  - Completed suicide [Fatal]
